FAERS Safety Report 23324002 (Version 3)
Quarter: 2024Q2

REPORT INFORMATION
  Report Type: Report from Study
  Country: US (occurrence: US)
  Receive Date: 20231221
  Receipt Date: 20240507
  Transmission Date: 20240716
  Serious: Yes (Hospitalization, Other)
  Sender: FDA-Public Use
  Company Number: US-ABBVIE-5546609

PATIENT
  Sex: Female

DRUGS (4)
  1. HUMIRA [Suspect]
     Active Substance: ADALIMUMAB
     Indication: Crohn^s disease
     Dosage: FORM STRENGTH WAS 40 MILLIGRAM.
     Route: 058
  2. HUMIRA [Suspect]
     Active Substance: ADALIMUMAB
     Dosage: FORM STRENGTH WAS 40 MILLIGRAM.
     Route: 058
     Dates: start: 20181216
  3. SKYRIZI [Suspect]
     Active Substance: RISANKIZUMAB-RZAA
     Indication: Crohn^s disease
     Route: 058
  4. SKYRIZI [Suspect]
     Active Substance: RISANKIZUMAB-RZAA
     Indication: Crohn^s disease
     Dosage: TIME INTERVAL: TOTAL
     Route: 042
     Dates: start: 202303, end: 202303

REACTIONS (23)
  - Pneumonia [Recovered/Resolved]
  - Bronchitis [Unknown]
  - Lupus-like syndrome [Recovered/Resolved]
  - Colectomy [Unknown]
  - Appendicectomy [Unknown]
  - Pancreatectomy [Unknown]
  - Cholecystectomy [Unknown]
  - Psoriasis [Unknown]
  - Colostomy closure [Unknown]
  - Pulmonary fibrosis [Unknown]
  - Crohn^s disease [Unknown]
  - Pustule [Unknown]
  - Erythema [Unknown]
  - Procedural complication [Unknown]
  - Pharyngeal swelling [Unknown]
  - Respiratory tract infection [Recovered/Resolved]
  - Hidradenitis [Recovered/Resolved]
  - Bronchitis [Unknown]
  - Influenza like illness [Unknown]
  - Feeling abnormal [Unknown]
  - Illness [Unknown]
  - Headache [Unknown]
  - Flushing [Unknown]

NARRATIVE: CASE EVENT DATE: 20230101
